FAERS Safety Report 8784237 (Version 1)
Quarter: 2012Q4

REPORT INFORMATION
  Report Type: Spontaneous
  Country: US (occurrence: None)
  Receive Date: 20120905
  Receipt Date: 20120905
  Transmission Date: 20130627
  Serious: Yes (Life-Threatening)
  Sender: FDA-Public Use
  Company Number: None

PATIENT
  Age: 74 Year
  Sex: Male
  Weight: 88 kg

DRUGS (1)
  1. BYSTOLIC [Suspect]
     Indication: BLOOD PRESSURE HIGH
     Dosage: 1 per day
     Route: 048
     Dates: start: 20111005, end: 20111129

REACTIONS (1)
  - Myocardial infarction [None]
